FAERS Safety Report 6267241-2 (Version None)
Quarter: 2009Q3

REPORT INFORMATION
  Report Type: 
  Country: None (occurrence: None)
  Receive Date: 20090714
  Receipt Date: 20090701
  Transmission Date: 20100115
  Serious: Yes (Other)
  Sender: FDA-Public Use
  Company Number: GB-PFIZER INC-2009234576

PATIENT
  Age: 33 Year

DRUGS (2)
  1. CHAMPIX [Suspect]
     Indication: SMOKING CESSATION THERAPY
     Dosage: 1 MG, UNK
     Route: 048
     Dates: start: 20090331, end: 20090516
  2. ANTIBIOTICS [Concomitant]
     Indication: INFECTION
     Dosage: UNK
     Dates: start: 20090301

REACTIONS (3)
  - CRYING [None]
  - DEPRESSED MOOD [None]
  - SUICIDAL IDEATION [None]
